FAERS Safety Report 5307712-6 (Version None)
Quarter: 2007Q2

REPORT INFORMATION
  Report Type: 
  Country: None (occurrence: None)
  Receive Date: 20070418
  Receipt Date: 20070413
  Transmission Date: 20071010
  Serious: Yes (Hospitalization)
  Sender: FDA-Public Use
  Company Number: 012323

PATIENT
  Age: 91 Year
  Sex: Male
  Weight: 59 kg

DRUGS (9)
  1. WARFARIN SODIUM [Suspect]
     Indication: ANTICOAGULANT THERAPY
     Dosage: 3 MG, QD, ORAL
     Route: 048
     Dates: start: 20070101, end: 20070409
  2. DIOVAN [Concomitant]
  3. ADVAIR DISKUS 100/50 [Concomitant]
  4. PREDNISONE TAB [Concomitant]
  5. COENZYME Q10 [Concomitant]
  6. VITAMINE C (ASCORBIC ACID) [Concomitant]
  7. VITAMIN A [Concomitant]
  8. VITAMIN B 1-6-12 (PYRIDOXINE HYDROCHLORIDE, CYANOCOBALAMIN, THIAMINE H [Concomitant]
  9. VITAMIN E [Concomitant]

REACTIONS (16)
  - ABDOMINAL DISTENSION [None]
  - ABDOMINAL PAIN UPPER [None]
  - ASTHENIA [None]
  - BLUE TOE SYNDROME [None]
  - DRY SKIN [None]
  - HEART RATE IRREGULAR [None]
  - HYPOTENSION [None]
  - INTERNATIONAL NORMALISED RATIO DECREASED [None]
  - MUSCULOSKELETAL PAIN [None]
  - OEDEMA PERIPHERAL [None]
  - PERIPHERAL COLDNESS [None]
  - PRURITUS [None]
  - RASH [None]
  - SKIN DISCOLOURATION [None]
  - SKIN NECROSIS [None]
  - THROMBOSIS [None]
